FAERS Safety Report 25498872 (Version 1)
Quarter: 2025Q3

REPORT INFORMATION
  Report Type: Spontaneous
  Country: US (occurrence: US)
  Receive Date: 20250701
  Receipt Date: 20250701
  Transmission Date: 20251020
  Serious: No
  Sender: CHIESI
  Company Number: US-CHIESI-2025CHF03455

PATIENT
  Age: 18 Year
  Sex: Male

DRUGS (1)
  1. FILSUVEZ [Suspect]
     Active Substance: BIRCH TRITERPENES
     Indication: Product used for unknown indication
     Route: 065
     Dates: start: 202504, end: 202505

REACTIONS (1)
  - Nausea [Recovering/Resolving]
